FAERS Safety Report 19040871 (Version 1)
Quarter: 2021Q1

REPORT INFORMATION
  Report Type: Spontaneous
  Country: US (occurrence: US)
  Receive Date: 20210322
  Receipt Date: 20210322
  Transmission Date: 20210420
  Serious: Yes (Other)
  Sender: FDA-Public Use
  Company Number: US-BAYER-2021-107506

PATIENT
  Age: 47 Year
  Sex: Male

DRUGS (2)
  1. SARS?COV?2 VACCINE [Concomitant]
  2. KOGENATE FS [Suspect]
     Active Substance: ANTIHEMOPHILIC FACTOR, HUMAN RECOMBINANT
     Indication: FACTOR VIII DEFICIENCY
     Dosage: 6200 IU, PRN, DAYLI AS NEEDED
     Route: 042
     Dates: start: 201812

REACTIONS (2)
  - Vaccination site haemorrhage [None]
  - Haemarthrosis [None]

NARRATIVE: CASE EVENT DATE: 202102
